FAERS Safety Report 7406915-4 (Version None)
Quarter: 2011Q2

REPORT INFORMATION
  Report Type: 
  Country: None (occurrence: None)
  Receive Date: 20110411
  Receipt Date: 20110408
  Transmission Date: 20111010
  Serious: No
  Sender: FDA-Public Use
  Company Number: US-PFIZER INC-2011078358

PATIENT
  Sex: Male
  Weight: 99.8 kg

DRUGS (8)
  1. HYDROCHLOROTHIAZIDE [Concomitant]
     Dosage: UNK
  2. CRESTOR [Concomitant]
     Dosage: UNK
  3. RANITIDINE [Concomitant]
     Dosage: UNK
  4. ACETYLSALICYLIC ACID [Concomitant]
     Dosage: UNK
  5. NEXIUM [Concomitant]
     Dosage: UNK
  6. SYNTHROID [Concomitant]
     Dosage: UNK
  7. NICOTROL [Suspect]
     Indication: TOBACCO USER
     Dosage: 10 MG, UNK
     Dates: start: 20110408
  8. XANAX [Concomitant]
     Dosage: UNK

REACTIONS (1)
  - OROPHARYNGEAL PAIN [None]
